FAERS Safety Report 22168209 (Version 4)
Quarter: 2024Q1

REPORT INFORMATION
  Report Type: Report from Study
  Country: US (occurrence: US)
  Receive Date: 20230403
  Receipt Date: 20240216
  Transmission Date: 20240410
  Serious: Yes (Other)
  Sender: FDA-Public Use
  Company Number: US-ABBVIE-4708918

PATIENT
  Sex: Female
  Weight: 90 kg

DRUGS (15)
  1. HUMIRA [Suspect]
     Active Substance: ADALIMUMAB
     Indication: Rheumatoid arthritis
     Dosage: FORM STRENGTH: 40 MILLIGRAM
     Route: 058
     Dates: start: 20190426
  2. TYLENOL [Concomitant]
     Active Substance: ACETAMINOPHEN
     Indication: Pain management
     Dosage: EXTRA STRENGTH
  3. FISH OIL [Concomitant]
     Active Substance: FISH OIL
     Indication: Supplementation therapy
  4. DILTIAZEM [Concomitant]
     Active Substance: DILTIAZEM
     Indication: Palpitations
  5. VITAMIN E [Concomitant]
     Active Substance: .ALPHA.-TOCOPHEROL
     Indication: Vitamin supplementation
  6. CELECOXIB [Concomitant]
     Active Substance: CELECOXIB
     Indication: Arthritis
  7. COENZYME Q10 [Concomitant]
     Active Substance: DIETARY SUPPLEMENT\UBIDECARENONE
     Indication: Supplementation therapy
  8. TYRVAYA [Concomitant]
     Active Substance: VARENICLINE TARTRATE
     Indication: Dry eye
  9. IRON [Concomitant]
     Active Substance: IRON
     Indication: Product used for unknown indication
  10. VITAMIN D3 [Concomitant]
     Active Substance: CHOLECALCIFEROL
     Indication: Vitamin supplementation
  11. METOPROLOL [Concomitant]
     Active Substance: METOPROLOL
     Indication: Palpitations
  12. TRAMADOL [Concomitant]
     Active Substance: TRAMADOL\TRAMADOL HYDROCHLORIDE
     Indication: Pain management
  13. XIIDRA [Concomitant]
     Active Substance: LIFITEGRAST
     Indication: Dry eye
  14. HYDROCHLOROTHIAZIDE [Concomitant]
     Active Substance: HYDROCHLOROTHIAZIDE
     Indication: Hypertension
  15. LOSARTAN [Concomitant]
     Active Substance: LOSARTAN
     Indication: Hypertension

REACTIONS (3)
  - Rotator cuff syndrome [Recovered/Resolved]
  - Procedural pain [Recovering/Resolving]
  - Arthralgia [Not Recovered/Not Resolved]

NARRATIVE: CASE EVENT DATE: 20230101
